FAERS Safety Report 25779253 (Version 1)
Quarter: 2025Q3

REPORT INFORMATION
  Report Type: Spontaneous
  Country: US (occurrence: None)
  Receive Date: 20250909
  Receipt Date: 20250909
  Transmission Date: 20251021
  Serious: Yes (Hospitalization)
  Sender: FDA-CTU
  Company Number: None

PATIENT
  Sex: Female

DRUGS (3)
  1. KISQALI [Suspect]
     Active Substance: RIBOCICLIB SUCCINATE
     Indication: Breast cancer female
     Route: 048
     Dates: start: 20250820
  2. ANASTROZOLE [Concomitant]
     Active Substance: ANASTROZOLE
  3. EUFLEXXA INJ 10MG/ML [Concomitant]

REACTIONS (1)
  - Flank pain [None]
